FAERS Safety Report 4638031-9 (Version None)
Quarter: 2005Q2

REPORT INFORMATION
  Report Type: 
  Country: None (occurrence: None)
  Receive Date: 20050415
  Receipt Date: 20050406
  Transmission Date: 20051028
  Serious: Yes (Hospitalization)
  Sender: FDA-Public Use
  Company Number: 2005-04-0285

PATIENT
  Age: 59 Year
  Sex: Male

DRUGS (5)
  1. CELESTAMINE TAB [Suspect]
     Indication: RHINITIS ALLERGIC
     Dosage: SEE IMAGE
     Route: 048
     Dates: start: 20040801, end: 20040101
  2. CELESTAMINE TAB [Suspect]
     Indication: RHINITIS ALLERGIC
     Dosage: SEE IMAGE
     Route: 048
     Dates: start: 20040101, end: 20050301
  3. CELESTAMINE TAB [Suspect]
     Indication: RHINITIS ALLERGIC
     Dosage: SEE IMAGE
     Route: 048
     Dates: start: 20040801, end: 20050301
  4. CONIEL (BENIDIPINE HCL) [Concomitant]
  5. BENZBROMARONE TABLETS [Concomitant]

REACTIONS (3)
  - EOSINOPHIL COUNT INCREASED [None]
  - PNEUMONIA [None]
  - SWELLING FACE [None]
